FAERS Safety Report 23141213 (Version 2)
Quarter: 2023Q4

REPORT INFORMATION
  Report Type: Spontaneous
  Country: US (occurrence: US)
  Receive Date: 20231103
  Receipt Date: 20231103
  Transmission Date: 20240109
  Serious: Yes (Other)
  Sender: FDA-Public Use
  Company Number: US-ABBVIE-5477842

PATIENT
  Age: 73 Year
  Sex: Female

DRUGS (2)
  1. PRED FORTE [Suspect]
     Active Substance: PREDNISOLONE ACETATE
     Indication: Corneal transplant
     Dosage: 10.5MG/ML
     Route: 065
  2. PRED FORTE [Suspect]
     Active Substance: PREDNISOLONE ACETATE
     Dosage: 10.5MG/ML
     Route: 065

REACTIONS (3)
  - Surgery [Unknown]
  - Product container issue [Unknown]
  - Tremor [Unknown]

NARRATIVE: CASE EVENT DATE: 20220801
